FAERS Safety Report 15107783 (Version 1)
Quarter: 2018Q3

REPORT INFORMATION
  Report Type: Spontaneous
  Country: IT (occurrence: IT)
  Receive Date: 20180704
  Receipt Date: 20180704
  Transmission Date: 20181010
  Serious: Yes (Other)
  Sender: FDA-Public Use
  Company Number: IT-TEVA-2018-IT-918831

PATIENT
  Sex: Female

DRUGS (2)
  1. FELODIPINA RATIOPHARM 5 MG COMPRESSE A RILASCIO PROLUNGATO [Suspect]
     Active Substance: FELODIPINE
     Indication: ESSENTIAL HYPERTENSION
     Dosage: 1 DOSAGE FORMS DAILY;
     Route: 048
  2. RAMIPRIL HYDROCHLOROTHIAZID RATIOPHARM 2,5/12,5 MG COMPRES [Suspect]
     Active Substance: HYDROCHLOROTHIAZIDE\RAMIPRIL
     Indication: ESSENTIAL HYPERTENSION
     Dosage: 1 DOSAGE FORMS DAILY;
     Route: 048
     Dates: start: 20170501, end: 20171225

REACTIONS (7)
  - Urinary incontinence [Recovering/Resolving]
  - Choking sensation [Recovering/Resolving]
  - Rhinorrhoea [Recovering/Resolving]
  - Cough [Recovering/Resolving]
  - Fatigue [Recovering/Resolving]
  - Pharyngitis [Recovering/Resolving]
  - Tachycardia [Recovering/Resolving]

NARRATIVE: CASE EVENT DATE: 20170501
